FAERS Safety Report 7330876-X (Version None)
Quarter: 2011Q1

REPORT INFORMATION
  Report Type: 
  Country: None (occurrence: None)
  Receive Date: 20110304
  Receipt Date: 20110221
  Transmission Date: 20110831
  Serious: Yes (Hospitalization, Other)
  Sender: FDA-Public Use
  Company Number: US-ELI_LILLY_AND_COMPANY-US200911005833

PATIENT
  Sex: Female
  Weight: 44.444 kg

DRUGS (15)
  1. NITROGLYCERIN [Concomitant]
  2. VITAMIN B NOS [Concomitant]
  3. FIBERCON [Concomitant]
  4. VALIUM [Concomitant]
  5. REGLAN [Concomitant]
  6. FORTEO [Suspect]
     Indication: OSTEOPOROSIS
     Dosage: 20 UG, DAILY (1/D)
     Route: 058
     Dates: start: 20090901
  7. FORTEO [Suspect]
     Dosage: 20 UG, DAILY (1/D)
  8. AREDIA [Concomitant]
  9. PROVENTIL                               /USA/ [Concomitant]
     Route: 055
  10. COUMADIN [Concomitant]
  11. ZYRTEC [Concomitant]
  12. FOLIC ACID [Concomitant]
  13. EPIPEN [Concomitant]
  14. FERROUS SULFATE TAB [Concomitant]
     Indication: ANAEMIA
  15. ACIPHEX [Concomitant]

REACTIONS (50)
  - CONTUSION [None]
  - VOMITING [None]
  - BALANCE DISORDER [None]
  - SWELLING [None]
  - VISION BLURRED [None]
  - BODY HEIGHT DECREASED [None]
  - SOFT TISSUE INJURY [None]
  - LETHARGY [None]
  - ANAEMIA [None]
  - PAIN [None]
  - GRAND MAL CONVULSION [None]
  - LOSS OF CONTROL OF LEGS [None]
  - PAIN IN EXTREMITY [None]
  - MUSCULAR WEAKNESS [None]
  - DIZZINESS [None]
  - MUSCLE RUPTURE [None]
  - TENDON RUPTURE [None]
  - MEMORY IMPAIRMENT [None]
  - HEART RATE IRREGULAR [None]
  - FATIGUE [None]
  - INJECTION SITE URTICARIA [None]
  - HEADACHE [None]
  - LOSS OF CONSCIOUSNESS [None]
  - NECK PAIN [None]
  - MIGRAINE [None]
  - SOMNOLENCE [None]
  - MUSCLE CONTRACTIONS INVOLUNTARY [None]
  - CONCUSSION [None]
  - CEREBRAL PALSY [None]
  - RIB FRACTURE [None]
  - DRUG INEFFECTIVE [None]
  - DRUG LEVEL FLUCTUATING [None]
  - DEEP VEIN THROMBOSIS [None]
  - ARTERIAL SPASM [None]
  - BACK PAIN [None]
  - CHEST PAIN [None]
  - RASH PRURITIC [None]
  - PETIT MAL EPILEPSY [None]
  - WEIGHT DECREASED [None]
  - BONE DISORDER [None]
  - DYSPNOEA [None]
  - NAUSEA [None]
  - SCOLIOSIS [None]
  - COMPRESSION FRACTURE [None]
  - LIGAMENT RUPTURE [None]
  - FALL [None]
  - INJECTION SITE HAEMATOMA [None]
  - TEMPOROMANDIBULAR JOINT SYNDROME [None]
  - PAIN IN JAW [None]
  - URTICARIA [None]
